FAERS Safety Report 4323294-X (Version None)
Quarter: 2004Q1

REPORT INFORMATION
  Report Type: 
  Country: None (occurrence: None)
  Receive Date: 20040322
  Receipt Date: 20040308
  Transmission Date: 20041129
  Serious: Yes (Hospitalization)
  Sender: FDA-Public Use
  Company Number: 04P-087-0252980-00

PATIENT
  Age: 70 Year
  Sex: Female
  Weight: 50 kg

DRUGS (17)
  1. BIAXIN [Suspect]
     Indication: BRONCHITIS ACUTE
     Dosage: 400 MG, 1 IN 1 D; PER ORAL
     Route: 048
     Dates: start: 20031205, end: 20031215
  2. ATORVASTATIN CALCIUM [Suspect]
     Indication: HYPERLIPIDAEMIA
     Dosage: PER ORAL
     Route: 048
     Dates: start: 20030709, end: 20031215
  3. ALPRAZOLAM [Suspect]
     Indication: ANXIETY DISORDER
     Dosage: PER ORAL
     Route: 048
     Dates: start: 20030926, end: 20031215
  4. VITAMIN B COMPLEX CAP [Suspect]
     Indication: HYPOVITAMINOSIS
     Dosage: PER ORAL
     Route: 048
     Dates: start: 20030808, end: 20031215
  5. FOMINOBEN HYDROCLORIDE [Suspect]
     Indication: BRONCHITIS ACUTE
     Dosage: PER ORAL
     Route: 048
     Dates: start: 20031125, end: 20031128
  6. AMBROXOL HYDROCHLORIDE [Suspect]
     Indication: BRONCHITIS ACUTE
     Dosage: PER ORAL
     Route: 048
     Dates: start: 20031125, end: 20031215
  7. TIPEPIDINE HIBENZATE [Suspect]
     Indication: BRONCHITIS ACUTE
     Dosage: PER ORAL
     Route: 048
     Dates: start: 20031205, end: 20031215
  8. IBUPROFEN [Suspect]
     Indication: BRONCHITIS ACUTE
     Dosage: PER ORAL
     Route: 048
     Dates: start: 20031125, end: 20031215
  9. LEVOTHYROXINE SODIUM [Concomitant]
  10. ASPIRIN DIALUMINATE [Concomitant]
  11. NITRENDIPINE [Concomitant]
  12. ESTROGENS CONJUGATED [Concomitant]
  13. ETIZOLAM [Concomitant]
  14. IFENPRODIL TARTRATE [Concomitant]
  15. PL [Concomitant]
  16. HERBAL ONT [Concomitant]
  17. PAROXETINE HCL [Concomitant]

REACTIONS (8)
  - ANXIETY DISORDER [None]
  - BRONCHITIS ACUTE [None]
  - DIFFICULTY IN WALKING [None]
  - FACE OEDEMA [None]
  - HEPATIC FUNCTION ABNORMAL [None]
  - HYPOVITAMINOSIS [None]
  - RASH [None]
  - VOMITING [None]
